FAERS Safety Report 9851361 (Version 2)
Quarter: 2014Q1

REPORT INFORMATION
  Report Type: Spontaneous
  Country: US (occurrence: US)
  Receive Date: 20140129
  Receipt Date: 20140216
  Transmission Date: 20141002
  Serious: Yes (Other)
  Sender: FDA-Public Use
  Company Number: US-009507513-1401USA012351

PATIENT
  Age: 3 Year
  Sex: Female

DRUGS (5)
  1. METHYLPREDNISOLONE SODIUM SUCCINATE [Suspect]
     Dosage: 8 MG OR 0.5 MG/KG
  2. DEXAMETHASONE [Suspect]
     Indication: STRIDOR
     Dosage: 4 DOSES
     Route: 042
  3. GLOBULIN, IMMUNE [Suspect]
     Indication: THROMBOCYTOPENIA
     Dosage: (1G/KG) INFUSED OVER 6 HOURS
     Route: 042
  4. GLOBULIN, IMMUNE [Suspect]
     Dosage: (1G/KG) INFUSED OVER 6 HOURS
     Route: 042
  5. DIPHENHYDRAMINE HYDROCHLORIDE [Concomitant]

REACTIONS (4)
  - Convulsion [Unknown]
  - Cerebral infarction [Unknown]
  - Lethargy [Unknown]
  - Visual impairment [Unknown]
